FAERS Safety Report 10306174 (Version 1)
Quarter: 2014Q3

REPORT INFORMATION
  Report Type: Spontaneous
  Country: GB (occurrence: GB)
  Receive Date: 20140715
  Receipt Date: 20140715
  Transmission Date: 20150326
  Serious: Yes (Life-Threatening, Hospitalization, Other)
  Sender: FDA-Public Use
  Company Number: GB-BRISTOL-MYERS SQUIBB COMPANY-21174263

PATIENT
  Age: 75 Year
  Sex: Female
  Weight: 65 kg

DRUGS (6)
  1. QUININE [Concomitant]
     Active Substance: QUININE
     Route: 048
  2. APIXABAN [Suspect]
     Active Substance: APIXABAN
     Indication: CEREBROVASCULAR ACCIDENT PROPHYLAXIS
     Dates: start: 20140502
  3. CANDESARTAN [Concomitant]
     Active Substance: CANDESARTAN
     Route: 048
  4. ATORVASTATIN [Concomitant]
     Active Substance: ATORVASTATIN
     Route: 048
  5. BISOPROLOL [Concomitant]
     Active Substance: BISOPROLOL
     Route: 048
  6. OMEPRAZOLE. [Concomitant]
     Active Substance: OMEPRAZOLE
     Route: 048

REACTIONS (3)
  - Circulatory collapse [Recovering/Resolving]
  - Fall [Unknown]
  - Splenic rupture [Unknown]

NARRATIVE: CASE EVENT DATE: 20140604
